FAERS Safety Report 24696585 (Version 1)
Quarter: 2024Q4

REPORT INFORMATION
  Report Type: Spontaneous
  Country: NA (occurrence: NA)
  Receive Date: 20241204
  Receipt Date: 20241204
  Transmission Date: 20250115
  Serious: Yes (Other)
  Sender: NOVARTIS
  Company Number: NA-002147023-NVSC2024NA229503

PATIENT
  Sex: Male

DRUGS (2)
  1. BROLUCIZUMAB [Suspect]
     Active Substance: BROLUCIZUMAB
     Indication: Product used for unknown indication
     Dosage: 6 MG
     Route: 031
     Dates: start: 20241107
  2. LUCENTIS [Concomitant]
     Active Substance: RANIBIZUMAB
     Indication: Product used for unknown indication
     Dosage: UNK
     Route: 065

REACTIONS (6)
  - Hypopyon [Recovering/Resolving]
  - Anterior chamber inflammation [Recovering/Resolving]
  - Endophthalmitis [Unknown]
  - Vitritis [Recovering/Resolving]
  - Pain [Recovering/Resolving]
  - Visual impairment [Recovering/Resolving]

NARRATIVE: CASE EVENT DATE: 20241109
